FAERS Safety Report 13272309 (Version 1)
Quarter: 2017Q1

REPORT INFORMATION
  Report Type: Spontaneous
  Country: US (occurrence: US)
  Receive Date: 20170224
  Receipt Date: 20170224
  Transmission Date: 20170428
  Serious: Yes (Hospitalization)
  Sender: FDA-Public Use
  Company Number: None

PATIENT
  Age: 61 Year
  Sex: Female
  Weight: 56.7 kg

DRUGS (4)
  1. MULTIVITAMINS [Concomitant]
     Active Substance: VITAMINS
  2. SYMBICORT [Concomitant]
     Active Substance: BUDESONIDE\FORMOTEROL FUMARATE DIHYDRATE
  3. STAHIST AD [Suspect]
     Active Substance: CHLORCYCLIZINE HYDROCHLORIDE\PSEUDOEPHEDRINE HYDROCHLORIDE
     Indication: RHINITIS
     Dosage: ?          OTHER FREQUENCY:ONCE;?
     Route: 048
  4. NADINE [Concomitant]

REACTIONS (6)
  - Fall [None]
  - Concussion [None]
  - Arrhythmia [None]
  - Facial bones fracture [None]
  - Vomiting [None]
  - Jaw fracture [None]

NARRATIVE: CASE EVENT DATE: 20170214
